FAERS Safety Report 7812315-5 (Version None)
Quarter: 2011Q4

REPORT INFORMATION
  Report Type: 
  Country: None (occurrence: None)
  Receive Date: 20111011
  Receipt Date: 20110929
  Transmission Date: 20120403
  Serious: Yes (Hospitalization, Other)
  Sender: FDA-Public Use
  Company Number: AUR-APL-2011-01749

PATIENT
  Age: 72 Year
  Sex: Female

DRUGS (6)
  1. ASPIRIN [Concomitant]
  2. OMEPRAZOLE [Concomitant]
  3. DICLOFENAC SODIUM [Suspect]
     Indication: PRODUCT USED FOR UNKNOWN INDICATION
  4. METFORMIN HCL [Suspect]
     Indication: PRODUCT USED FOR UNKNOWN INDICATION
     Dosage: (850 MG, 12 HR),
  5. FUROSEMIDE [Suspect]
     Indication: PRODUCT USED FOR UNKNOWN INDICATION
     Dosage: (20 MG, 1 D),
  6. ENALAPRIL MALEATE [Suspect]
     Indication: PRODUCT USED FOR UNKNOWN INDICATION
     Dosage: (5 MG, 1 D),

REACTIONS (20)
  - VOMITING [None]
  - DIARRHOEA [None]
  - CREATININE RENAL CLEARANCE DECREASED [None]
  - ACCIDENTAL OVERDOSE [None]
  - RENAL FAILURE ACUTE [None]
  - ABDOMINAL DISCOMFORT [None]
  - BLOOD LACTIC ACID INCREASED [None]
  - HYPERKALAEMIA [None]
  - BLOOD GLUCOSE INCREASED [None]
  - DIALYSIS [None]
  - TACHYPNOEA [None]
  - BLOOD SODIUM DECREASED [None]
  - HYPOTENSION [None]
  - ANION GAP INCREASED [None]
  - HYPOVOLAEMIA [None]
  - ASTHENIA [None]
  - ELECTROCARDIOGRAM P WAVE ABNORMAL [None]
  - METABOLIC ACIDOSIS [None]
  - PAIN IN EXTREMITY [None]
  - OLIGURIA [None]
